FAERS Safety Report 4269273-2 (Version None)
Quarter: 2004Q1

REPORT INFORMATION
  Report Type: 
  Country: None (occurrence: None)
  Receive Date: 20040109
  Receipt Date: 20031230
  Transmission Date: 20041129
  Serious: Yes (Hospitalization)
  Sender: FDA-Public Use
  Company Number: US-JNJFOC-20040100202

PATIENT
  Age: 63 Year
  Sex: Male

DRUGS (9)
  1. INFLIXIMAB (INFLIXIMAB, RECOMBINANT) LYOPHILIZED POWDER [Suspect]
     Indication: RHEUMATOID ARTHRITIS
     Dosage: INTRAVENOUS
     Route: 042
     Dates: start: 20010215
  2. ASPIRIN [Concomitant]
  3. ENALAPRIL MALEATE [Concomitant]
  4. FOLIC ACID [Concomitant]
  5. FOSAMAX [Concomitant]
  6. METHOTREXATE [Concomitant]
  7. PREVACID [Concomitant]
  8. LIPITOR [Concomitant]
  9. AGGRENOX SA (ASASANTIN) [Concomitant]

REACTIONS (2)
  - CAROTID ARTERY STENOSIS [None]
  - DIZZINESS [None]
